FAERS Safety Report 8583645-7 (Version None)
Quarter: 2012Q3

REPORT INFORMATION
  Report Type: 
  Country: None (occurrence: None)
  Receive Date: 20120809
  Receipt Date: 20120704
  Transmission Date: 20120928
  Serious: Yes (Hospitalization)
  Sender: FDA-Public Use
  Company Number: FR-009507513-2012SP035712

PATIENT
  Age: 46 Year
  Sex: Male
  Weight: 79 kg

DRUGS (11)
  1. MEDROL [Concomitant]
     Indication: TRANSPLANT REJECTION
     Dosage: 16 MG
     Dates: start: 20120614
  2. LOVENOX [Concomitant]
     Indication: THROMBOSIS PROPHYLAXIS
     Dosage: UNK
     Dates: start: 20120614
  3. VIRAFERONPEG [Suspect]
     Dosage: 80 ?G, QW
     Dates: start: 20110517, end: 20120614
  4. ACUPAN [Concomitant]
     Indication: PAIN
     Dosage: UNK
     Dates: start: 20120614
  5. VICTRELIS [Suspect]
     Indication: HEPATITIS C
     Dosage: 800 MG, TID
     Dates: start: 20110614, end: 20120426
  6. OGAST [Concomitant]
     Indication: GASTRITIS
     Dosage: 1 UNK, UNK
     Dates: start: 20120614
  7. COPEGUS [Suspect]
     Dosage: 1000 MG, QD
     Route: 048
     Dates: start: 20110517, end: 20120614
  8. INSULIN [Concomitant]
     Indication: PRODUCT USED FOR UNKNOWN INDICATION
     Dosage: UNK, BID
     Dates: start: 20120614, end: 20120614
  9. CELLCEPT [Concomitant]
     Indication: TRANSPLANT REJECTION
     Dosage: 1 DF, QD
  10. MORPHINE HCL ELIXIR [Concomitant]
     Indication: PAIN
     Dosage: UNK
     Dates: start: 20120614
  11. PROGRAF [Concomitant]
     Indication: TRANSPLANT REJECTION
     Dosage: 2 DF, UNK
     Dates: start: 20120614

REACTIONS (1)
  - HEPATIC NEOPLASM MALIGNANT [None]
